FAERS Safety Report 9027829 (Version 1)
Quarter: 2013Q1

REPORT INFORMATION
  Report Type: Spontaneous
  Country: US (occurrence: US)
  Receive Date: 20130124
  Receipt Date: 20130124
  Transmission Date: 20140127
  Serious: Yes (Hospitalization, Other)
  Sender: FDA-Public Use
  Company Number: US-JNJFOC-20130104725

PATIENT
  Sex: Female

DRUGS (3)
  1. MOTRIN [Suspect]
     Indication: PAIN
     Route: 065
  2. ACETYLSALICYLIC ACID [Suspect]
     Indication: PAIN
     Route: 065
  3. LYRICA [Suspect]
     Indication: PAIN
     Route: 065

REACTIONS (2)
  - Ulcer [Unknown]
  - Incorrect dose administered [Unknown]
